FAERS Safety Report 8120375-X (Version None)
Quarter: 2012Q1

REPORT INFORMATION
  Report Type: 
  Country: None (occurrence: None)
  Receive Date: 20120207
  Receipt Date: 20120117
  Transmission Date: 20120608
  Serious: Yes (Other)
  Sender: FDA-Public Use
  Company Number: JP-GLAXOSMITHKLINE-B0776720A

PATIENT
  Sex: Female

DRUGS (4)
  1. LITHIUM CARBONATE [Concomitant]
     Indication: BIPOLAR DISORDER
     Dosage: 400MG PER DAY
     Route: 048
  2. CLONAZEPAM [Concomitant]
     Indication: BIPOLAR DISORDER
     Dosage: 4.5MG PER DAY
     Route: 048
  3. ZYPREXA [Concomitant]
     Indication: BIPOLAR DISORDER
     Dosage: 2.5MG PER DAY
     Route: 048
  4. LAMICTAL [Suspect]
     Indication: BIPOLAR DISORDER
     Dosage: 2.5MG PER DAY
     Route: 048
     Dates: start: 20111212, end: 20120105

REACTIONS (3)
  - AGGRESSION [None]
  - IRRITABILITY [None]
  - ANXIETY [None]
